FAERS Safety Report 24739416 (Version 2)
Quarter: 2024Q4

REPORT INFORMATION
  Report Type: Spontaneous
  Country: IN (occurrence: IN)
  Receive Date: 20241216
  Receipt Date: 20241230
  Transmission Date: 20250114
  Serious: Yes (Other)
  Sender: NOVARTIS
  Company Number: IN-002147023-NVSC2024IN236892

PATIENT
  Age: 39 Year
  Sex: Female

DRUGS (2)
  1. IMATINIB [Suspect]
     Active Substance: IMATINIB
     Indication: Chronic myeloid leukaemia
     Dosage: 400 MG
     Route: 065
     Dates: start: 20190504, end: 20200127
  2. IMATINIB [Suspect]
     Active Substance: IMATINIB
     Dosage: 600 MG
     Route: 065
     Dates: start: 20200127, end: 20200131

REACTIONS (3)
  - Philadelphia chromosome positive [Unknown]
  - Splenomegaly [Unknown]
  - Drug resistance [Unknown]
